FAERS Safety Report 17507386 (Version 5)
Quarter: 2024Q2

REPORT INFORMATION
  Report Type: Other
  Country: US (occurrence: None)
  Receive Date: 20200306
  Receipt Date: 20240402
  Transmission Date: 20240715
  Serious: Yes (Other)
  Sender: FDA-Public Use
  Company Number: US-ROCHE-2562420

PATIENT
  Age: 74 Year
  Sex: Female

DRUGS (9)
  1. ZELBORAF [Suspect]
     Active Substance: VEMURAFENIB
     Indication: Malignant melanoma
     Dosage: TAKE 2 TABLET(S) BY MOUTH TWICE A DAY
     Route: 048
  2. ZELBORAF [Suspect]
     Active Substance: VEMURAFENIB
     Indication: Metastases to gastrointestinal tract
  3. ZELBORAF [Suspect]
     Active Substance: VEMURAFENIB
     Indication: Metastases to liver
  4. ZELBORAF [Suspect]
     Active Substance: VEMURAFENIB
     Indication: Cholangiocarcinoma
  5. DOXYCYCLINE HYCLATE [Concomitant]
     Active Substance: DOXYCYCLINE HYCLATE
     Route: 048
  6. CALCIUM [Concomitant]
     Active Substance: CALCIUM
     Dosage: 1 TABLET
  7. VITAMIN B COMPLEX [Concomitant]
     Active Substance: CYANOCOBALAMIN\DEXPANTHENOL\NIACINAMIDE\PYRIDOXINE HYDROCHLORIDE\RIBOFLAVIN 5^-PHOSPHATE SODIUM\THIA
     Route: 048
  8. VITAMIN D3 [Concomitant]
     Active Substance: CHOLECALCIFEROL
  9. ADDERALL [Concomitant]
     Active Substance: AMPHETAMINE ASPARTATE\AMPHETAMINE SULFATE\DEXTROAMPHETAMINE SACCHARATE\DEXTROAMPHETAMINE SULFATE
     Route: 048
     Dates: start: 20240102

REACTIONS (2)
  - Neoplasm malignant [Unknown]
  - Hyperparathyroidism [Unknown]

NARRATIVE: CASE EVENT DATE: 20200528
